FAERS Safety Report 9149053 (Version 1)
Quarter: 2013Q1

REPORT INFORMATION
  Report Type: Spontaneous
  Country: IT (occurrence: None)
  Receive Date: 20130131
  Receipt Date: 20130131
  Transmission Date: 20140127
  Serious: Yes (Hospitalization)
  Sender: FDA-Public Use
  Company Number: AUR-APL-2013-00893

PATIENT
  Age: 39 Year
  Sex: Female

DRUGS (2)
  1. AMOXICILLIN [Suspect]
     Indication: OROPHARYNGEAL PAIN
     Dosage: ONE DOSE UNIT/TOTAL
     Route: 048
     Dates: start: 20080326, end: 20080326
  2. NORMIX [Suspect]
     Indication: PRODUCT USED FOR UNKNOWN INDICATION
     Dosage: ONE DOSE UNIT/TOTAL
     Dates: start: 20080326, end: 20080326

REACTIONS (2)
  - Face oedema [None]
  - Tongue oedema [None]
